FAERS Safety Report 15220866 (Version 1)
Quarter: 2018Q3

REPORT INFORMATION
  Report Type: Spontaneous
  Country: US (occurrence: US)
  Receive Date: 20180703
  Receipt Date: 20180703
  Transmission Date: 20181010
  Serious: Yes (Hospitalization)
  Sender: FDA-Public Use
  Company Number: None

PATIENT
  Age: 69 Year
  Sex: Female
  Weight: 101.2 kg

DRUGS (2)
  1. CISPLATIN. [Suspect]
     Active Substance: CISPLATIN
     Dates: end: 20180605
  2. GEMCITABINE HYDROCHLORIDE. [Suspect]
     Active Substance: GEMCITABINE HYDROCHLORIDE
     Dates: end: 20180605

REACTIONS (7)
  - Fatigue [None]
  - Diarrhoea [None]
  - Dysuria [None]
  - Urinary tract infection [None]
  - Chills [None]
  - Nausea [None]
  - Hyponatraemia [None]

NARRATIVE: CASE EVENT DATE: 20180626
